FAERS Safety Report 4596757-X (Version None)
Quarter: 2005Q1

REPORT INFORMATION
  Report Type: 
  Country: None (occurrence: None)
  Receive Date: 20050228
  Receipt Date: 20040419
  Transmission Date: 20050727
  Serious: No
  Sender: FDA-Public Use
  Company Number: 7839

PATIENT
  Age: 55 Year
  Sex: Female

DRUGS (3)
  1. METHOTREXATE [Suspect]
     Indication: RHEUMATOID ARTHRITIS
     Dosage: 7.5 MG PO
     Route: 048
     Dates: start: 20040317, end: 20040407
  2. ETORICOXIB [Concomitant]
  3. THYROXINE [Concomitant]

REACTIONS (2)
  - FLUID RETENTION [None]
  - SWELLING FACE [None]
